FAERS Safety Report 8842806 (Version 1)
Quarter: 2012Q4

REPORT INFORMATION
  Report Type: 
  Country: US (occurrence: US)
  Receive Date: 20121016
  Receipt Date: 20121016
  Transmission Date: 20130627
  Serious: No
  Sender: FDA-Public Use
  Company Number: US-PFIZER INC-2012253503

PATIENT
  Age: 25 Year
  Sex: Female
  Weight: 68.03 kg

DRUGS (1)
  1. DEPO-MEDROL [Suspect]
     Indication: PAIN
     Dosage: UNK
     Dates: start: 201210

REACTIONS (1)
  - Musculoskeletal stiffness [Not Recovered/Not Resolved]
